FAERS Safety Report 6945183-4 (Version None)
Quarter: 2010Q3

REPORT INFORMATION
  Report Type: 
  Country: None (occurrence: None)
  Receive Date: 20100827
  Receipt Date: 20100514
  Transmission Date: 20110219
  Serious: No
  Sender: FDA-Public Use
  Company Number: US-KINGPHARMUSA00001-K201000598

PATIENT
  Age: 55 Year
  Sex: Female
  Weight: 61.224 kg

DRUGS (7)
  1. FLECTOR [Suspect]
     Indication: PAIN IN EXTREMITY
     Dosage: 1 PATCH, QD FOR 12 HOURS
     Route: 061
     Dates: start: 20100419, end: 20100513
  2. SYNTHROID [Concomitant]
     Indication: HYPOTHYROIDISM
     Dosage: 150 MCG, QD
  3. PROPRANOLOL [Concomitant]
     Indication: MIGRAINE
     Dosage: 80 MG, QHS
  4. ZOMIG [Concomitant]
     Indication: MIGRAINE
     Dosage: UNK
  5. AMBIEN [Concomitant]
     Indication: SLEEP DISORDER
     Dosage: 0.5 DF, PRN
  6. XANAX [Concomitant]
     Indication: SLEEP DISORDER
     Dosage: 0.5 DF, PRN
  7. ESTROGENS [Concomitant]
     Indication: MENOPAUSE
     Dosage: PATCH, UNK

REACTIONS (1)
  - MIGRAINE [None]
